FAERS Safety Report 4613881-3 (Version None)
Quarter: 2005Q1

REPORT INFORMATION
  Report Type: 
  Country: None (occurrence: None)
  Receive Date: 20050316
  Receipt Date: 20050307
  Transmission Date: 20050727
  Serious: Yes (Disabling)
  Sender: FDA-Public Use
  Company Number: 2005-126185-NL

PATIENT
  Age: 35 Year
  Sex: Male

DRUGS (3)
  1. MIRTAZAPINE [Suspect]
     Indication: DEPRESSION
     Dosage: 30 MG QD/45 MG QD/ 15 MG  QD
     Route: 048
     Dates: start: 20050204, end: 20050201
  2. MIRTAZAPINE [Suspect]
     Indication: DEPRESSION
     Dosage: 30 MG QD/45 MG QD/ 15 MG  QD
     Route: 048
     Dates: start: 20041210, end: 20050203
  3. MIRTAZAPINE [Suspect]
     Indication: DEPRESSION
     Dosage: 30 MG QD/45 MG QD/ 15 MG  QD
     Route: 048
     Dates: start: 20050201, end: 20050215

REACTIONS (1)
  - AGGRESSION [None]
